FAERS Safety Report 22305386 (Version 1)
Quarter: 2023Q2

REPORT INFORMATION
  Report Type: Other
  Country: BE (occurrence: BE)
  Receive Date: 20230510
  Receipt Date: 20230510
  Transmission Date: 20230721
  Serious: Yes (Hospitalization, Other)
  Sender: FDA-Public Use
  Company Number: BE-Navinta LLC-00044

PATIENT
  Age: 40 Year
  Sex: Male

DRUGS (9)
  1. NICARDIPINE [Suspect]
     Active Substance: NICARDIPINE
     Indication: Blood pressure measurement
     Dosage: 4 MG/H
  2. CALCIUM GLUCONATE [Concomitant]
     Active Substance: CALCIUM GLUCONATE
     Indication: Product used for unknown indication
     Dosage: 2 G OF CALCIUM GLUCONATE WAS ADMINISTERED AS A BOLUS
  3. SODIUM BICARBONATE [Concomitant]
     Active Substance: SODIUM BICARBONATE
     Indication: Product used for unknown indication
     Dosage: 200 ML OF 1.4% SODIUM BICARBONATE
  4. DEXMEDETOMIDINE [Concomitant]
     Active Substance: DEXMEDETOMIDINE
     Indication: Sedation
  5. AMOXICILLIN\CLAVULANIC ACID [Concomitant]
     Active Substance: AMOXICILLIN\CLAVULANIC ACID
     Indication: Evidence based treatment
     Dosage: 1 G/6 H AMOXICILLIN-CLAVULANATE
  6. PROPOFOL [Concomitant]
     Active Substance: PROPOFOL
     Indication: Sedation
  7. NICARDIPINE [Suspect]
     Active Substance: NICARDIPINE
     Indication: Blood pressure increased
     Dosage: 3 MG/H RATE WAS THEN STARTED?AFTER AN INITIAL 1 MG BOLUS
  8. CALCIUM GLUCONATE [Concomitant]
     Active Substance: CALCIUM GLUCONATE
     Indication: Product used for unknown indication
     Dosage: 1 G OF CALCIUM GLUCONATE
  9. CALCIUM GLUCONATE [Concomitant]
     Active Substance: CALCIUM GLUCONATE
     Indication: Product used for unknown indication

REACTIONS (2)
  - Acute respiratory failure [Recovered/Resolved]
  - Condition aggravated [Recovered/Resolved]
